FAERS Safety Report 25218349 (Version 1)
Quarter: 2025Q2

REPORT INFORMATION
  Report Type: Spontaneous
  Country: JP (occurrence: JP)
  Receive Date: 20250421
  Receipt Date: 20250421
  Transmission Date: 20250717
  Serious: Yes (Life-Threatening, Other)
  Sender: ROCHE
  Company Number: JP-CHUGAI-2025012413

PATIENT
  Age: 18 Year
  Sex: Male

DRUGS (3)
  1. ACTEMRA [Suspect]
     Active Substance: TOCILIZUMAB
     Indication: Takayasu^s arteritis
     Dosage: 162 MILLIGRAM, ONCE/WEEK
     Route: 050
  2. METHYLPREDNISOLONE [Concomitant]
     Active Substance: METHYLPREDNISOLONE
     Indication: Takayasu^s arteritis
     Route: 065
  3. METHYLPREDNISOLONE [Concomitant]
     Active Substance: METHYLPREDNISOLONE
     Route: 065

REACTIONS (5)
  - Cardiac arrest [Recovering/Resolving]
  - Aneurysm ruptured [Unknown]
  - Device related infection [Unknown]
  - Systemic candida [Unknown]
  - Pneumonia fungal [Unknown]
